FAERS Safety Report 9298923 (Version 1)
Quarter: 2013Q2

REPORT INFORMATION
  Report Type: Spontaneous
  Country: US (occurrence: US)
  Receive Date: 20130520
  Receipt Date: 20130520
  Transmission Date: 20140414
  Serious: No
  Sender: FDA-Public Use
  Company Number: US-SANOFI-AVENTIS-2012SA076092

PATIENT
  Sex: Male

DRUGS (2)
  1. LANTUS [Suspect]
     Route: 058
     Dates: start: 201207
  2. APIDRA [Suspect]
     Route: 058
     Dates: start: 201207

REACTIONS (3)
  - Depressed mood [Unknown]
  - Depression [Unknown]
  - Anxiety [Unknown]
